FAERS Safety Report 13825021 (Version 2)
Quarter: 2017Q3

REPORT INFORMATION
  Report Type: Spontaneous
  Country: US (occurrence: US)
  Receive Date: 20170802
  Receipt Date: 20170803
  Transmission Date: 20171127
  Serious: Yes (Other)
  Sender: FDA-Public Use
  Company Number: US-ASTRAZENECA-2017SE78164

PATIENT
  Age: 62 Year
  Sex: Female

DRUGS (1)
  1. NEXIUM 24HR [Suspect]
     Active Substance: ESOMEPRAZOLE MAGNESIUM
     Dosage: DOSE UNKNOWN
     Route: 048
     Dates: start: 201701

REACTIONS (8)
  - Gastric dilatation [Unknown]
  - Crying [Unknown]
  - Liver disorder [Unknown]
  - Hepatitis [Unknown]
  - Chromaturia [Unknown]
  - Feeling abnormal [Unknown]
  - Pain [Unknown]
  - Intentional product use issue [Unknown]
